FAERS Safety Report 17598381 (Version 1)
Quarter: 2020Q1

REPORT INFORMATION
  Report Type: Spontaneous
  Country: US (occurrence: US)
  Receive Date: 20200330
  Receipt Date: 20200330
  Transmission Date: 20200409
  Serious: No
  Sender: FDA-Public Use
  Company Number: US-GALDERMA-US19066096

PATIENT
  Sex: Female

DRUGS (4)
  1. LOSARTAN. [Concomitant]
     Active Substance: LOSARTAN
     Indication: HYPERTENSION
  2. ALLER-TEC (CETIRIZINE) [Concomitant]
     Indication: HYPERSENSITIVITY
  3. LISINOPRIL. [Concomitant]
     Active Substance: LISINOPRIL
     Indication: BLOOD CHOLESTEROL
  4. DIFFERIN GEL [Suspect]
     Active Substance: ADAPALENE
     Indication: DERMAL CYST
     Dosage: 0.1%
     Route: 061
     Dates: start: 201906

REACTIONS (5)
  - Erythema [Recovered/Resolved]
  - Skin irritation [Recovered/Resolved]
  - Product use in unapproved indication [Recovered/Resolved]
  - Skin exfoliation [Not Recovered/Not Resolved]
  - Dry skin [Not Recovered/Not Resolved]

NARRATIVE: CASE EVENT DATE: 201906
